FAERS Safety Report 10928597 (Version 1)
Quarter: 2015Q1

REPORT INFORMATION
  Report Type: Spontaneous
  Country: US (occurrence: None)
  Receive Date: 20150129
  Receipt Date: 20150129
  Transmission Date: 20150721
  Serious: Yes (Hospitalization)
  Sender: FDA-Public Use
  Company Number: A-US2014-104756

PATIENT
  Age: 66 Year
  Sex: Male

DRUGS (5)
  1. OPSUMIT [Suspect]
     Active Substance: MACITENTAN
     Indication: PULMONARY ARTERIAL HYPERTENSION
     Route: 048
     Dates: start: 20140108
  2. TREPROSTINIL [Concomitant]
     Active Substance: TREPROSTINIL
  3. RIOCIGUAT (RIOCIGUAT) [Suspect]
     Active Substance: RIOCIGUAT
     Indication: PRODUCT USED FOR UNKNOWN INDICATION
     Route: 048
  4. TYVASO (PREPROSTINIL SODIUM) [Concomitant]
  5. ADCIRCA [Concomitant]
     Active Substance: TADALAFIL

REACTIONS (4)
  - Anaemia [None]
  - Malaise [None]
  - Haemoglobin decreased [None]
  - Epistaxis [None]

NARRATIVE: CASE EVENT DATE: 201406
